FAERS Safety Report 21439713 (Version 3)
Quarter: 2022Q4

REPORT INFORMATION
  Report Type: Spontaneous
  Country: US (occurrence: US)
  Receive Date: 20221011
  Receipt Date: 20221103
  Transmission Date: 20230112
  Serious: No
  Sender: FDA-Public Use
  Company Number: US-PFIZER INC-202201216359

PATIENT
  Age: 68 Year
  Sex: Female
  Weight: 65.306 kg

DRUGS (12)
  1. PAXLOVID [Suspect]
     Active Substance: NIRMATRELVIR\RITONAVIR
     Indication: COVID-19 treatment
     Dosage: 3 PILLS 2X DAYS, PF-07321332 300 MG/RITONAVIR 100 MG
     Dates: start: 20221004, end: 20221008
  2. FLECAINIDE [Concomitant]
     Active Substance: FLECAINIDE
     Dosage: UNK, 2X/DAY
  3. ROSUVASTATIN [Concomitant]
     Active Substance: ROSUVASTATIN
     Dosage: UNK, 1X/DAY
  4. BREO ELLIPTA [Concomitant]
     Active Substance: FLUTICASONE FUROATE\VILANTEROL TRIFENATATE
     Dosage: UNK, 1X/DAY
     Dates: start: 20221004
  5. ZINC [Concomitant]
     Active Substance: ZINC
     Dosage: UNK
     Dates: start: 20221004, end: 2022
  6. FOSTEUM PLUS [Concomitant]
     Dosage: UNK, 2X/DAY
  7. CHOLECALCIFEROL [Concomitant]
     Active Substance: CHOLECALCIFEROL
     Dosage: UNK, 2X/DAY
     Dates: end: 2022
  8. DICALCIUM MALATE [Concomitant]
     Dosage: UNK, 2X/DAY
     Dates: end: 2022
  9. TRIBASIC CALCIUM PHOSPHATE [Concomitant]
     Active Substance: TRIBASIC CALCIUM PHOSPHATE
     Dosage: UNK, 2X/DAY
     Dates: end: 2022
  10. GENISTEIN [Concomitant]
     Active Substance: GENISTEIN
     Dosage: UNK, 2X/DAY
     Dates: end: 2022
  11. MENAQUINONE-7 [Concomitant]
     Dosage: UNK, 2X/DAY
     Dates: end: 2022
  12. SODIUM PHOSPHATE, DIBASIC [Concomitant]
     Active Substance: SODIUM PHOSPHATE, DIBASIC
     Dosage: UNK, 2X/DAY
     Dates: end: 2022

REACTIONS (9)
  - Dysgeusia [Recovered/Resolved]
  - Decreased appetite [Recovered/Resolved]
  - Dry throat [Recovered/Resolved]
  - Dysphagia [Recovered/Resolved]
  - Myalgia [Recovered/Resolved]
  - Malaise [Not Recovered/Not Resolved]
  - Dysphonia [Not Recovered/Not Resolved]
  - Swollen tongue [Not Recovered/Not Resolved]
  - Eczema [Recovered/Resolved]

NARRATIVE: CASE EVENT DATE: 20220101
